FAERS Safety Report 10762259 (Version 1)
Quarter: 2015Q1

REPORT INFORMATION
  Report Type: Spontaneous
  Country: US (occurrence: None)
  Receive Date: 20150129
  Receipt Date: 20150129
  Transmission Date: 20150721
  Serious: Yes (Disabling, Other)
  Sender: FDA-Public Use
  Company Number: 120475

PATIENT
  Age: 40 Year
  Sex: Female
  Weight: 59 kg

DRUGS (2)
  1. KEPPRA [Suspect]
     Active Substance: LEVETIRACETAM
     Indication: CONVULSION PROPHYLAXIS
     Route: 048
     Dates: start: 201307, end: 2014
  2. EXCEDRIN (ACETYLSALICYLIC ACID; CAFFEINE; PARACETAMOL; SALICYLAMIDE) [Concomitant]

REACTIONS (3)
  - Headache [None]
  - Seizure [None]
  - Photophobia [None]

NARRATIVE: CASE EVENT DATE: 201404
